FAERS Safety Report 11460257 (Version 1)
Quarter: 2015Q3

REPORT INFORMATION
  Report Type: Spontaneous
  Country: GB (occurrence: GB)
  Receive Date: 20150904
  Receipt Date: 20150904
  Transmission Date: 20151125
  Serious: Yes (Other)
  Sender: FDA-Public Use
  Company Number: GB-GLAXOSMITHKLINE-GB2015124375

PATIENT
  Age: 88 Year
  Sex: Male
  Weight: 70 kg

DRUGS (2)
  1. CEFUROXIME. [Suspect]
     Active Substance: CEFUROXIME
     Indication: CATARACT OPERATION
     Route: 047
  2. WATER FOR INJECTIONS [Suspect]
     Active Substance: WATER
     Indication: CATARACT OPERATION
     Route: 047
     Dates: start: 20150520

REACTIONS (1)
  - Corneal opacity [Unknown]
